FAERS Safety Report 8464109-8 (Version None)
Quarter: 2012Q2

REPORT INFORMATION
  Report Type: 
  Country: None (occurrence: None)
  Receive Date: 20120625
  Receipt Date: 20120618
  Transmission Date: 20120825
  Serious: Yes (Hospitalization)
  Sender: FDA-Public Use
  Company Number: US-B.I. PHARMACEUTICALS,INC./RIDGEFIELD-2012-BP-13933BP

PATIENT
  Sex: Female

DRUGS (5)
  1. DYNACIRC CR [Concomitant]
     Indication: HYPERTENSION
  2. PRADAXA [Suspect]
     Indication: ATRIAL FIBRILLATION
     Dosage: 300 MG
     Route: 048
     Dates: start: 20111201
  3. PRAVASTATIN [Concomitant]
     Indication: BLOOD CHOLESTEROL INCREASED
  4. SOTALOL HYDROCHLORIDE [Concomitant]
     Indication: ATRIAL FIBRILLATION
     Dates: start: 20120301
  5. TRAMADOL HCL [Concomitant]
     Indication: PAIN

REACTIONS (4)
  - LUNG INFILTRATION [None]
  - PULMONARY HAEMORRHAGE [None]
  - DYSPEPSIA [None]
  - CARDIAC FAILURE CONGESTIVE [None]
